FAERS Safety Report 12471095 (Version 3)
Quarter: 2016Q3

REPORT INFORMATION
  Report Type: Report from Study
  Country: JP (occurrence: JP)
  Receive Date: 20160616
  Receipt Date: 20160721
  Transmission Date: 20161109
  Serious: Yes (Hospitalization)
  Sender: FDA-Public Use
  Company Number: JP-TEVA-668526ISR

PATIENT
  Age: 77 Year
  Sex: Female
  Weight: 39.8 kg

DRUGS (13)
  1. MOSAPRIDE CITRATE [Concomitant]
     Active Substance: MOSAPRIDE CITRATE
     Dates: start: 20151216
  2. CARBOCISTEINE [Concomitant]
     Active Substance: CARBOCYSTEINE
     Dates: start: 20151216
  3. LOXONIN [Concomitant]
     Active Substance: LOXOPROFEN SODIUM
     Dosage: FORM OF ADMINISTRATION:TAPE (INCLUDING POULTICE)
  4. ROZEREM [Concomitant]
     Active Substance: RAMELTEON
     Dates: start: 20150515
  5. NEODOPASTON [Concomitant]
     Active Substance: CARBIDOPA\LEVODOPA
     Dates: start: 20150515
  6. MEILAX [Concomitant]
     Active Substance: ETHYL LOFLAZEPATE
     Dates: start: 20160309
  7. SUVENYL [Concomitant]
     Active Substance: HYALURONATE SODIUM
     Dates: start: 20150507
  8. BENIDIPINE HYDROCHLORIDE [Concomitant]
     Active Substance: BENIDIPINE HYDROCHLORIDE
     Dates: start: 20160616
  9. TAKECAB [Concomitant]
     Active Substance: VONOPRAZAN FUMURATE
     Dates: start: 20160428
  10. SUNRYTHM [Concomitant]
     Active Substance: PILSICAINIDE HYDROCHLORIDE
     Dates: start: 20160601
  11. PURSENNID [Concomitant]
     Active Substance: SENNOSIDES A AND B
     Dates: start: 20131107
  12. MAGNESIUM OXIDE. [Concomitant]
     Active Substance: MAGNESIUM OXIDE
     Dates: start: 20151216
  13. RASAGILINE MESILATE [Suspect]
     Active Substance: RASAGILINE MESYLATE
     Indication: PARKINSON^S DISEASE
     Dosage: 1 MILLIGRAM DAILY;
     Route: 048
     Dates: start: 20150704

REACTIONS (1)
  - Sinus node dysfunction [Recovered/Resolved]

NARRATIVE: CASE EVENT DATE: 20160607
